FAERS Safety Report 8950603 (Version 2)
Quarter: 2013Q1

REPORT INFORMATION
  Report Type: Spontaneous
  Country: US (occurrence: US)
  Receive Date: 20121207
  Receipt Date: 20130104
  Transmission Date: 20140127
  Serious: Yes (Hospitalization, Other)
  Sender: FDA-Public Use
  Company Number: US-009507513-1212USA002014

PATIENT
  Sex: Female

DRUGS (3)
  1. PEG-INTRON [Suspect]
     Indication: HEPATITIS C
     Dosage: UNK
     Dates: start: 20121107, end: 20121208
  2. RIBAVIRIN [Suspect]
     Indication: HEPATITIS C
     Dosage: UNK
     Dates: start: 20121107, end: 20121208
  3. TELAPREVIR [Suspect]
     Indication: HEPATITIS C
     Dosage: UNK
     Dates: start: 20121107, end: 20121208

REACTIONS (14)
  - Hypoaesthesia [Unknown]
  - Memory impairment [Unknown]
  - Pain [Unknown]
  - Pyrexia [Unknown]
  - Dizziness [Unknown]
  - Dyspnoea [Unknown]
  - Nausea [Unknown]
  - Pyrexia [Unknown]
  - Chest pain [Unknown]
  - Cough [Unknown]
  - Hypoaesthesia [Unknown]
  - Dyspnoea [Unknown]
  - Cardiac disorder [Unknown]
  - Dizziness [Unknown]
